FAERS Safety Report 7425360 (Version 3)
Quarter: 2012Q4

REPORT INFORMATION
  Report Type: 
  Country: CA (occurrence: CA)
  Receive Date: 20100618
  Receipt Date: 20121107
  Transmission Date: 20130627
  Serious: Yes (Death, Other)
  Sender: FDA-Public Use
  Company Number: PHHY2009CA11272

PATIENT
  Sex: Female
  Weight: 37.19 kg

DRUGS (7)
  1. SANDOSTATIN LAR [Suspect]
     Indication: METASTATIC CARCINOID TUMOUR
     Dosage: 20 mg, QMO
     Route: 030
     Dates: start: 20081125, end: 20090301
  2. SANDOSTATIN LAR [Suspect]
     Indication: DIARRHOEA
  3. ADVAIR [Concomitant]
  4. SALBUTAMOL [Concomitant]
  5. SPIRIVA [Concomitant]
  6. LOPERAMIDE [Concomitant]
     Indication: DIARRHOEA
     Dosage: 2 mg, TID
     Route: 048
  7. K-DUR [Concomitant]
     Indication: BLOOD POTASSIUM DECREASED
     Dosage: 20 mg, BID
     Route: 048

REACTIONS (10)
  - Respiratory failure [Fatal]
  - Chronic respiratory disease [Fatal]
  - Gastroenteritis [Recovered/Resolved]
  - Diarrhoea [Recovering/Resolving]
  - Weight decreased [Unknown]
  - Blood potassium decreased [Unknown]
  - Drug ineffective [Unknown]
  - Flatulence [Unknown]
  - Abdominal discomfort [Recovering/Resolving]
  - Nausea [Unknown]
